FAERS Safety Report 17129467 (Version 2)
Quarter: 2020Q1

REPORT INFORMATION
  Report Type: Spontaneous
  Country: AT (occurrence: AT)
  Receive Date: 20191209
  Receipt Date: 20200319
  Transmission Date: 20200409
  Serious: Yes (Other)
  Sender: FDA-Public Use
  Company Number: AT-MYLANLABS-2019M1119555

PATIENT
  Age: 69 Year
  Sex: Male
  Weight: 90 kg

DRUGS (25)
  1. RITONAVIR. [Suspect]
     Active Substance: RITONAVIR
     Dosage: UNK
     Route: 065
     Dates: start: 20111107, end: 20120419
  2. NEVIRAPINE. [Suspect]
     Active Substance: NEVIRAPINE
     Indication: ANTIRETROVIRAL THERAPY
     Dosage: UNK
     Route: 065
     Dates: start: 20120419, end: 20121203
  3. ABACAVIR W/DOLUTEGRAVIR/LAMIVUDINE [Suspect]
     Active Substance: ABACAVIR SULFATE\DOLUTEGRAVIR SODIUM\LAMIVUDINE
     Dosage: UNK
     Route: 065
     Dates: start: 20140606, end: 20151115
  4. ABACAVIR                           /01401602/ [Suspect]
     Active Substance: ABACAVIR SULFATE
     Dosage: UNK
     Route: 065
     Dates: start: 20151105, end: 20181108
  5. LAMIVUDINE. [Suspect]
     Active Substance: LAMIVUDINE
     Dosage: UNK
     Route: 065
     Dates: start: 20151125
  6. AZIDOTHYMIDINE [Suspect]
     Active Substance: ZIDOVUDINE
     Indication: ANTIRETROVIRAL THERAPY
     Dosage: UNK
     Route: 065
     Dates: start: 20031107, end: 20040423
  7. DOLUTEGRAVIR [Suspect]
     Active Substance: DOLUTEGRAVIR
     Dosage: UNK
     Route: 065
     Dates: start: 20181108
  8. EFAVIRENZ. [Suspect]
     Active Substance: EFAVIRENZ
     Indication: ANTIRETROVIRAL THERAPY
     Dosage: UNK
     Route: 065
     Dates: start: 20040423, end: 20111107
  9. LAMIVUDINE. [Suspect]
     Active Substance: LAMIVUDINE
     Dosage: UNK
     Route: 065
     Dates: start: 20031107, end: 20111107
  10. TENOFOVIR DISOPROXIL [Suspect]
     Active Substance: TENOFOVIR DISOPROXIL
     Indication: HIV INFECTION
     Dosage: UNK
     Dates: start: 20111107, end: 20140606
  11. LAMIVUDINE. [Suspect]
     Active Substance: LAMIVUDINE
     Dosage: UNK
     Route: 065
     Dates: start: 20140606, end: 20151105
  12. LOPINAVIR [Suspect]
     Active Substance: LOPINAVIR
     Indication: ANTIRETROVIRAL THERAPY
     Dosage: UNK
     Dates: start: 20031107, end: 20040423
  13. EMTRICITABINE [Suspect]
     Active Substance: EMTRICITABINE
     Indication: ANTIRETROVIRAL THERAPY
     Dosage: UNK
     Route: 065
     Dates: start: 20111107, end: 20140606
  14. RITONAVIR. [Suspect]
     Active Substance: RITONAVIR
     Indication: ANTIRETROVIRAL THERAPY
     Dosage: UNK
     Route: 065
     Dates: start: 20031107, end: 20040423
  15. DARUNAVIR [Suspect]
     Active Substance: DARUNAVIR
     Indication: ANTIRETROVIRAL THERAPY
     Dosage: UNK
     Route: 065
     Dates: start: 20111107, end: 20120419
  16. ABACAVIR W/DOLUTEGRAVIR/LAMIVUDINE [Suspect]
     Active Substance: ABACAVIR SULFATE\DOLUTEGRAVIR SODIUM\LAMIVUDINE
     Indication: ANTIRETROVIRAL THERAPY
     Dosage: UNK
     Route: 065
     Dates: start: 200708, end: 20111107
  17. TENOFOVIR DISOPROXIL [Suspect]
     Active Substance: TENOFOVIR DISOPROXIL
     Indication: ANTIRETROVIRAL THERAPY
     Dosage: UNK
     Route: 065
     Dates: start: 20040423, end: 201708
  18. RALTEGRAVIR. [Suspect]
     Active Substance: RALTEGRAVIR
     Indication: ANTIRETROVIRAL THERAPY
     Dosage: UNK
     Route: 065
     Dates: start: 20140821, end: 20151105
  19. EFAVIRENZ. [Suspect]
     Active Substance: EFAVIRENZ
     Dosage: UNK
     Route: 065
     Dates: start: 20121203, end: 20140606
  20. LAMIVUDINE. [Suspect]
     Active Substance: LAMIVUDINE
     Indication: ANTIRETROVIRAL THERAPY
     Dosage: UNK
     Route: 065
     Dates: start: 20031107, end: 20040423
  21. ABACAVIR W/DOLUTEGRAVIR/LAMIVUDINE [Suspect]
     Active Substance: ABACAVIR SULFATE\DOLUTEGRAVIR SODIUM\LAMIVUDINE
     Dosage: UNK
     Route: 065
     Dates: start: 20151105, end: 20151125
  22. ABACAVIR                           /01401602/ [Suspect]
     Active Substance: ABACAVIR SULFATE
     Indication: ANTIRETROVIRAL THERAPY
     Dosage: UNK
     Route: 065
     Dates: start: 200708, end: 20111107
  23. RALTEGRAVIR. [Suspect]
     Active Substance: RALTEGRAVIR
     Dosage: UNK
     Route: 065
     Dates: start: 20151125, end: 20181108
  24. DOLUTEGRAVIR [Suspect]
     Active Substance: DOLUTEGRAVIR
     Indication: ANTIRETROVIRAL THERAPY
     Dosage: UNK
     Route: 065
     Dates: start: 20140606, end: 20140821
  25. ABACAVIR                           /01401602/ [Suspect]
     Active Substance: ABACAVIR SULFATE
     Dosage: UNK
     Route: 065
     Dates: start: 20140606, end: 20151105

REACTIONS (15)
  - Fatigue [Recovered/Resolved]
  - Nausea [Recovered/Resolved]
  - Weight increased [Unknown]
  - Abnormal dreams [Recovered/Resolved]
  - Diarrhoea [Recovered/Resolved]
  - Hyperphagia [Unknown]
  - Dizziness [Unknown]
  - Decreased appetite [Recovered/Resolved]
  - Renal impairment [Unknown]
  - Vomiting [Recovered/Resolved]
  - Erectile dysfunction [Unknown]
  - Depressed mood [Recovered/Resolved]
  - Vertigo [Recovered/Resolved]
  - Dyspepsia [Recovered/Resolved]
  - Asthenia [Recovered/Resolved]

NARRATIVE: CASE EVENT DATE: 2012
